FAERS Safety Report 10235844 (Version 1)
Quarter: 2014Q2

REPORT INFORMATION
  Report Type: Spontaneous
  Country: US (occurrence: None)
  Receive Date: 20140612
  Receipt Date: 20140612
  Transmission Date: 20141212
  Serious: Yes (Life-Threatening, Hospitalization)
  Sender: FDA-Public Use
  Company Number: None

PATIENT
  Age: 35 Year
  Sex: Female
  Weight: 116 kg

DRUGS (1)
  1. CLOZAPINE [Suspect]
     Indication: MYOCARDITIS
     Route: 048
     Dates: start: 20140116, end: 20140123

REACTIONS (14)
  - Confusional state [None]
  - Urinary incontinence [None]
  - Mental status changes [None]
  - Pyrexia [None]
  - Hepatic enzyme increased [None]
  - Renal failure [None]
  - Tachycardia [None]
  - Tachypnoea [None]
  - Hypercapnia [None]
  - Hypoventilation [None]
  - Hypotension [None]
  - Hypokinesia [None]
  - Deep vein thrombosis [None]
  - Myocarditis [None]
